FAERS Safety Report 18846888 (Version 1)
Quarter: 2021Q1

REPORT INFORMATION
  Report Type: Report from Study
  Country: US (occurrence: US)
  Receive Date: 20210203
  Receipt Date: 20210203
  Transmission Date: 20210419
  Serious: No
  Sender: FDA-Public Use
  Company Number: US-EXELIXIS-CABO-20031519

PATIENT
  Age: 63 Year
  Sex: Male

DRUGS (3)
  1. CABOMETYX [Suspect]
     Active Substance: CABOZANTINIB S-MALATE
     Indication: RENAL CANCER
     Dosage: 60 MG, QD
     Dates: start: 20200612, end: 202006
  2. CABOMETYX [Suspect]
     Active Substance: CABOZANTINIB S-MALATE
     Indication: METASTASES TO CENTRAL NERVOUS SYSTEM
     Dosage: 60 MG, QD
     Dates: start: 202006, end: 202007
  3. CABOMETYX [Suspect]
     Active Substance: CABOZANTINIB S-MALATE
     Dosage: 40 MG
     Dates: start: 20200728

REACTIONS (3)
  - Skin ulcer [Unknown]
  - Diarrhoea [Unknown]
  - Stomatitis [Unknown]

NARRATIVE: CASE EVENT DATE: 202006
